FAERS Safety Report 14433714 (Version 4)
Quarter: 2018Q4

REPORT INFORMATION
  Report Type: Spontaneous
  Country: JP (occurrence: JP)
  Receive Date: 20180124
  Receipt Date: 20181008
  Transmission Date: 20190204
  Serious: Yes (Death, Other)
  Sender: FDA-Public Use
  Company Number: JP-SA-2018SA015330

PATIENT
  Age: 81 Year
  Sex: Male
  Weight: 53 kg

DRUGS (16)
  1. ELPLAT [Suspect]
     Active Substance: OXALIPLATIN
     Dosage: 100 MG, QD
     Route: 041
     Dates: start: 20161130, end: 20161130
  2. CALCIUM LEVOFOLINATE [Suspect]
     Active Substance: LEVOLEUCOVORIN CALCIUM
     Dosage: 125 MG, QD
     Route: 041
     Dates: start: 20161130, end: 20161201
  3. CALCIUM LEVOFOLINATE [Suspect]
     Active Substance: LEVOLEUCOVORIN CALCIUM
     Dosage: 125 MG, QD
     Route: 041
     Dates: start: 20170104, end: 20170105
  4. FLUOROURACIL. [Suspect]
     Active Substance: FLUOROURACIL
     Dosage: 460 MG, QD
     Route: 040
     Dates: start: 20161130, end: 20161201
  5. FLUOROURACIL. [Suspect]
     Active Substance: FLUOROURACIL
     Dosage: 460 MG, QD
     Route: 040
     Dates: start: 20170104, end: 20170105
  6. FLUOROURACIL. [Suspect]
     Active Substance: FLUOROURACIL
     Dosage: 690 MG, QD
     Route: 041
     Dates: start: 20161116, end: 20161117
  7. ELPLAT [Suspect]
     Active Substance: OXALIPLATIN
     Dosage: 100 MG, QD
     Route: 041
     Dates: start: 20170104, end: 20170104
  8. CALCIUM LEVOFOLINATE [Suspect]
     Active Substance: LEVOLEUCOVORIN CALCIUM
     Indication: RECTAL CANCER
     Dosage: 125 MG, QD
     Route: 041
     Dates: start: 20161116, end: 20161117
  9. ELPLAT [Suspect]
     Active Substance: OXALIPLATIN
     Indication: RECTAL CANCER
     Dosage: UNK UNK,QD
     Route: 041
     Dates: start: 20161116, end: 20161116
  10. FLUOROURACIL. [Suspect]
     Active Substance: FLUOROURACIL
     Dosage: 460 MG, QD
     Route: 040
     Dates: start: 20161116, end: 20161117
  11. FLUOROURACIL. [Suspect]
     Active Substance: FLUOROURACIL
     Dosage: 690 MG, QD
     Route: 041
     Dates: start: 20161130, end: 20161201
  12. FLUOROURACIL. [Suspect]
     Active Substance: FLUOROURACIL
     Dosage: 690 MG, QD
     Route: 041
     Dates: start: 20170104, end: 20170105
  13. CALCIUM LEVOFOLINATE [Suspect]
     Active Substance: LEVOLEUCOVORIN CALCIUM
     Dosage: 125 MG, QD
     Route: 041
     Dates: start: 20161215, end: 20161216
  14. FLUOROURACIL. [Suspect]
     Active Substance: FLUOROURACIL
     Dosage: 690 MG, QD
     Route: 041
     Dates: start: 20161215, end: 20161216
  15. ELPLAT [Suspect]
     Active Substance: OXALIPLATIN
     Dosage: 100 MG, QD
     Route: 041
     Dates: start: 20161215, end: 20161215
  16. FLUOROURACIL. [Suspect]
     Active Substance: FLUOROURACIL
     Dosage: 460 MG, QD
     Route: 040
     Dates: start: 20161215, end: 20161216

REACTIONS (10)
  - Hydronephrosis [Unknown]
  - Pain [Unknown]
  - Dysuria [Unknown]
  - Enterovesical fistula [Recovered/Resolved]
  - Acute kidney injury [Recovering/Resolving]
  - Pneumaturia [Recovered/Resolved]
  - Abdominal abscess [Recovering/Resolving]
  - Urinary tract infection [Unknown]
  - Neuropathy peripheral [Unknown]
  - Urine abnormality [Unknown]

NARRATIVE: CASE EVENT DATE: 201612
